FAERS Safety Report 10388451 (Version 1)
Quarter: 2014Q3

REPORT INFORMATION
  Report Type: Report from Study
  Country: US (occurrence: US)
  Receive Date: 20140815
  Receipt Date: 20140815
  Transmission Date: 20150326
  Serious: Yes (Hospitalization, Other)
  Sender: FDA-Public Use
  Company Number: PHHY2014US100578

PATIENT
  Age: 28 Year
  Sex: Male

DRUGS (58)
  1. CARVEDILOL. [Concomitant]
     Active Substance: CARVEDILOL
  2. MULTIVIT//VITAMINS NOS [Concomitant]
     Active Substance: VITAMINS
  3. BICANORM [Concomitant]
     Active Substance: SODIUM BICARBONATE
  4. ARANESP [Concomitant]
     Active Substance: DARBEPOETIN ALFA
  5. BISOPROLOL [Concomitant]
     Active Substance: BISOPROLOL
  6. KALINOR RETARD [Concomitant]
     Active Substance: POTASSIUM CHLORIDE
  7. VALCYTE [Concomitant]
     Active Substance: VALGANCICLOVIR HYDROCHLORIDE
  8. JONOSTERIL                         /00351401/ [Concomitant]
  9. VOMEX A [Concomitant]
     Active Substance: DIMENHYDRINATE
  10. DIOVAN [Concomitant]
     Active Substance: VALSARTAN
  11. PANTOZOL [Concomitant]
     Active Substance: PANTOPRAZOLE SODIUM
  12. PERFALGAN [Concomitant]
     Active Substance: ACETAMINOPHEN
  13. UNACID [Concomitant]
     Active Substance: AMPICILLIN SODIUM\SULBACTAM SODIUM
  14. EBRANTIL [Concomitant]
     Active Substance: URAPIDIL
  15. METOCLOPRAMIDE. [Concomitant]
     Active Substance: METOCLOPRAMIDE
  16. THIOPENTAL [Concomitant]
     Active Substance: THIOPENTAL
  17. SUFENTANIL [Concomitant]
     Active Substance: SUFENTANIL
  18. CLONIDINE. [Concomitant]
     Active Substance: CLONIDINE
  19. RENAGEL [Concomitant]
     Active Substance: SEVELAMER HYDROCHLORIDE
  20. FERMED//SACCHARATED IRON OXIDE [Concomitant]
  21. HYDROCHLOROTHIAZIDE. [Concomitant]
     Active Substance: HYDROCHLOROTHIAZIDE
  22. INSULIN [Concomitant]
     Active Substance: INSULIN NOS
  23. TEPILTA [Concomitant]
     Active Substance: ALUMINUM HYDROXIDE\MAGNESIUM OXIDE\OXETHAZAINE
  24. TARGIN [Concomitant]
     Active Substance: NALOXONE HYDROCHLORIDE\OXYCODONE HYDROCHLORIDE
  25. FELODIPINE. [Concomitant]
     Active Substance: FELODIPINE
  26. KALINOR /CRO/ [Concomitant]
  27. FUROSEMIDE. [Concomitant]
     Active Substance: FUROSEMIDE
  28. LAXANS//BISACODYL [Concomitant]
  29. LOPERAMIDE [Concomitant]
     Active Substance: LOPERAMIDE
  30. ROCURONIUM [Concomitant]
     Active Substance: ROCURONIUM BROMIDE
  31. ISOFLURANE. [Concomitant]
     Active Substance: ISOFLURANE
  32. SIMULECT [Concomitant]
     Active Substance: BASILIXIMAB
  33. FOSAMAX [Concomitant]
     Active Substance: ALENDRONATE SODIUM
  34. DOXAZOSIN [Concomitant]
     Active Substance: DOXAZOSIN\DOXAZOSIN MESYLATE
  35. CIPROBAY (CIPROFLOXACIN) [Concomitant]
     Active Substance: CIPROFLOXACIN
  36. ZOPICLONE [Concomitant]
     Active Substance: ZOPICLONE
  37. AMLODIPINE [Concomitant]
     Active Substance: AMLODIPINE BESYLATE
  38. RESONIUM [Concomitant]
     Active Substance: SODIUM POLYSTYRENE SULFONATE
  39. SAB SIMPLEX [Concomitant]
  40. DIPIDOLOR [Concomitant]
     Active Substance: PIRITRAMIDE
  41. SODIUM CHLORIDE. [Concomitant]
     Active Substance: SODIUM CHLORIDE
  42. NITRENDIPINE [Concomitant]
     Active Substance: NITRENDIPINE
  43. NEOSTIGMINE [Concomitant]
     Active Substance: NEOSTIGMINE
  44. SOLU DECORTIN [Concomitant]
     Active Substance: PREDNISOLONE SODIUM SUCCINATE
  45. MYFORTIC [Suspect]
     Active Substance: MYCOPHENOLATE SODIUM
     Indication: RENAL TRANSPLANT
     Dosage: UNK UKN, UNK
  46. ANTI PHOSPHAT [Concomitant]
  47. ENOXAPARIN SODIUM. [Concomitant]
     Active Substance: ENOXAPARIN SODIUM
  48. NOVAMINSULFON [Concomitant]
     Active Substance: METAMIZOLE
  49. HEPARIN [Concomitant]
     Active Substance: HEPARIN SODIUM
  50. LACTULOSE. [Concomitant]
     Active Substance: LACTULOSE
  51. COTRIM D.S. [Concomitant]
     Active Substance: SULFAMETHOXAZOLE\TRIMETHOPRIM
  52. PANTOPRAZOLE [Concomitant]
     Active Substance: PANTOPRAZOLE SODIUM
  53. BUSCOPAN [Concomitant]
     Active Substance: BUTYLSCOPOLAMINE BROMIDE
  54. AMPHO-MORONAL [Concomitant]
     Active Substance: AMPHOTERICIN B
  55. DECORTIN [Concomitant]
     Active Substance: PREDNISONE
  56. MYFORTIC [Suspect]
     Active Substance: MYCOPHENOLATE SODIUM
     Indication: IMMUNOSUPPRESSION
     Dosage: DOSE WAS REDUCED
  57. PROGRAF [Suspect]
     Active Substance: TACROLIMUS\TACROLIMUS ANHYDROUS
  58. NIFEDIPINE. [Concomitant]
     Active Substance: NIFEDIPINE

REACTIONS (13)
  - Complications of transplanted kidney [Recovered/Resolved with Sequelae]
  - Intra-abdominal haematoma [Unknown]
  - Renal tubular atrophy [Unknown]
  - Viral infection [Unknown]
  - Wound complication [Unknown]
  - Diarrhoea [Recovered/Resolved with Sequelae]
  - Lymphocele [Unknown]
  - Thrombocytopenia [Unknown]
  - Haemolytic uraemic syndrome [Unknown]
  - Kidney fibrosis [Unknown]
  - Hypokalaemia [Unknown]
  - Hiatus hernia [Unknown]
  - Hyperkalaemia [Recovered/Resolved with Sequelae]

NARRATIVE: CASE EVENT DATE: 20111117
